FAERS Safety Report 7437879-5 (Version None)
Quarter: 2011Q2

REPORT INFORMATION
  Report Type: 
  Country: None (occurrence: None)
  Receive Date: 20110426
  Receipt Date: 20110418
  Transmission Date: 20111010
  Serious: Yes (Death)
  Sender: FDA-Public Use
  Company Number: B0698286A

PATIENT
  Sex: Male

DRUGS (12)
  1. ALLOPURINOL [Concomitant]
  2. PRAVASTATIN [Concomitant]
  3. FUROSEMIDE [Concomitant]
  4. RITONAVIR [Suspect]
     Indication: HIV INFECTION
     Route: 065
     Dates: start: 20060201, end: 20081101
  5. AMLODIPINE [Suspect]
     Indication: HYPERTENSION
     Route: 065
  6. ISOSORBIDE DINITRATE [Concomitant]
  7. EFAVIRENZ [Suspect]
     Indication: HIV INFECTION
     Route: 065
     Dates: start: 20051001
  8. ATAZANAVIR [Suspect]
     Indication: HIV INFECTION
     Route: 065
     Dates: start: 20060201
  9. KIVEXA [Suspect]
     Indication: HIV INFECTION
     Route: 065
     Dates: start: 20051001, end: 20100101
  10. CARVEDILOL [Concomitant]
  11. ENALAPRIL [Concomitant]
  12. ASPIRIN [Concomitant]

REACTIONS (9)
  - CARDIAC ENZYMES [None]
  - NAUSEA [None]
  - VOMITING [None]
  - MICROALBUMINURIA [None]
  - ACUTE MYOCARDIAL INFARCTION [None]
  - ABDOMINAL PAIN [None]
  - ARRHYTHMIA [None]
  - CHOLESTASIS [None]
  - TREATMENT NONCOMPLIANCE [None]
